FAERS Safety Report 25897335 (Version 1)
Quarter: 2025Q4

REPORT INFORMATION
  Report Type: Spontaneous
  Country: US (occurrence: None)
  Receive Date: 20251008
  Receipt Date: 20251008
  Transmission Date: 20260117
  Serious: Yes (Hospitalization)
  Sender: FDA-CTU
  Company Number: None

PATIENT
  Sex: Female

DRUGS (1)
  1. HUMIRA [Suspect]
     Active Substance: ADALIMUMAB

REACTIONS (5)
  - Bursitis [None]
  - Loss of consciousness [None]
  - Gait inability [None]
  - Streptococcal sepsis [None]
  - Acute kidney injury [None]

NARRATIVE: CASE EVENT DATE: 20230517
